FAERS Safety Report 7138873-4 (Version None)
Quarter: 2010Q4

REPORT INFORMATION
  Report Type: 
  Country: None (occurrence: None)
  Receive Date: 20101202
  Receipt Date: 20101202
  Transmission Date: 20110411
  Serious: Yes (Hospitalization)
  Sender: FDA-Public Use
  Company Number: None

PATIENT
  Sex: Male
  Weight: 85.7298 kg

DRUGS (1)
  1. DARVOCET [Suspect]

REACTIONS (4)
  - DIZZINESS [None]
  - HALLUCINATIONS, MIXED [None]
  - HYPERTENSION [None]
  - VERTIGO [None]
